FAERS Safety Report 6264580-6 (Version None)
Quarter: 2009Q3

REPORT INFORMATION
  Report Type: 
  Country: None (occurrence: None)
  Receive Date: 20090710
  Receipt Date: 20090630
  Transmission Date: 20100115
  Serious: Yes (Other)
  Sender: FDA-Public Use
  Company Number: PHHY2009BR27065

PATIENT
  Sex: Female
  Weight: 62 kg

DRUGS (2)
  1. FORASEQ [Suspect]
     Indication: ASTHMA
     Dosage: 12/400 MCG EVERY 12 HOURS
     Dates: start: 20090627
  2. NASONEX [Concomitant]
     Dosage: 1 DF, BID
     Dates: start: 20090627

REACTIONS (5)
  - CONDITION AGGRAVATED [None]
  - DYSPNOEA [None]
  - FATIGUE [None]
  - NERVOUSNESS [None]
  - TREMOR [None]
